FAERS Safety Report 17106763 (Version 1)
Quarter: 2019Q4

REPORT INFORMATION
  Report Type: Spontaneous
  Country: US (occurrence: US)
  Receive Date: 20191108
  Receipt Date: 20191108
  Transmission Date: 20200122
  Serious: No
  Sender: FDA-Public Use
  Company Number: None

PATIENT
  Age: 50 Year
  Sex: Male

DRUGS (1)
  1. SYMFI [Suspect]
     Active Substance: EFAVIRENZ\LAMIVUDINE\TENOFOVIR DISOPROXIL FUMARATE
     Indication: HIV INFECTION
     Dosage: ?          OTHER DOSE:600-300-300MG;?
     Route: 048
     Dates: start: 20190301, end: 20191108

REACTIONS (2)
  - Blood urine present [None]
  - Feeling drunk [None]

NARRATIVE: CASE EVENT DATE: 20191104
